FAERS Safety Report 5895772-3 (Version None)
Quarter: 2008Q3

REPORT INFORMATION
  Report Type: 
  Country: None (occurrence: None)
  Receive Date: 20080924
  Receipt Date: 20080703
  Transmission Date: 20090109
  Serious: No
  Sender: FDA-Public Use
  Company Number: US-BAYER-200828290NA

PATIENT
  Sex: Female

DRUGS (1)
  1. YASMIN [Suspect]
     Indication: ANAEMIA
     Route: 048
     Dates: start: 20080619

REACTIONS (4)
  - DYSPNOEA [None]
  - MIGRAINE [None]
  - NAUSEA [None]
  - NO ADVERSE EVENT [None]
